FAERS Safety Report 8346881-0 (Version None)
Quarter: 2012Q2

REPORT INFORMATION
  Report Type: 
  Country: None (occurrence: None)
  Receive Date: 20120509
  Receipt Date: 20120507
  Transmission Date: 20120825
  Serious: Yes (Death)
  Sender: FDA-Public Use
  Company Number: CA-ABBOTT-12P-028-0933460-00

PATIENT
  Age: 81 Year
  Sex: Male
  Weight: 67.646 kg

DRUGS (5)
  1. LUPRON DEPOT [Suspect]
     Indication: PROSTATE CANCER
     Route: 030
     Dates: start: 20110810
  2. LIPITOR [Concomitant]
     Indication: PROSTATE CANCER
     Dates: start: 20051001, end: 20100701
  3. LIPITOR [Concomitant]
     Dates: start: 20110810
  4. FLUATMIDE [Concomitant]
     Indication: PRODUCT USED FOR UNKNOWN INDICATION
     Route: 048
  5. ASPIRIN [Concomitant]
     Indication: PRODUCT USED FOR UNKNOWN INDICATION
     Dates: start: 20100102

REACTIONS (1)
  - HYPOKALAEMIA [None]
